FAERS Safety Report 5197500-6 (Version None)
Quarter: 2006Q4

REPORT INFORMATION
  Report Type: 
  Country: None (occurrence: None)
  Receive Date: 20061228
  Receipt Date: 20061207
  Transmission Date: 20070319
  Serious: Yes (Hospitalization)
  Sender: FDA-Public Use
  Company Number: 6027951

PATIENT
  Age: 85 Year
  Sex: Female

DRUGS (8)
  1. BISOPROLOL FUMARATE [Suspect]
     Indication: ESSENTIAL HYPERTENSION
     Dosage: 5 MG (5 MG, 1 IN 1 D)
     Dates: end: 20060501
  2. ANAFRANIL [Suspect]
     Dosage: 75 MG (75 MG, 1 IN 1 D)
  3. ATHYMIL (MIANSERIN HYDROCHLORIDE) [Suspect]
     Indication: DEPRESSION
     Dosage: 60 MG (60 MG, 1 IN 1 D)
     Route: 048
  4. PRETERAX (INDAPAMIDE, PERINDOPRIL ERBUMINE) [Suspect]
     Indication: ESSENTIAL HYPERTENSION
     Dosage: 1 DOSAGE FORMS (1 DOSAGE FORMS, 1 IN 1 D)
     Route: 048
     Dates: end: 20060426
  5. PREVISCAN (PENTOXIFYLLINE) [Concomitant]
  6. PREDNISONE [Concomitant]
  7. PRAVASTATIN SODIUM [Concomitant]
  8. CORDARONE [Concomitant]

REACTIONS (8)
  - AGITATION [None]
  - BRAIN SCAN ABNORMAL [None]
  - CEREBRAL ATROPHY [None]
  - CONFUSIONAL STATE [None]
  - DRUG INTERACTION [None]
  - FALL [None]
  - HYPOTENSION [None]
  - IRON DEFICIENCY ANAEMIA [None]
